FAERS Safety Report 22350157 (Version 1)
Quarter: 2023Q2

REPORT INFORMATION
  Report Type: Spontaneous
  Country: US (occurrence: US)
  Receive Date: 20230522
  Receipt Date: 20230522
  Transmission Date: 20230721
  Serious: No
  Sender: FDA-Public Use
  Company Number: US-METUCHEN-STN-2022-0107

PATIENT
  Age: 51 Year
  Sex: Male

DRUGS (2)
  1. STENDRA [Suspect]
     Active Substance: AVANAFIL
     Indication: Erectile dysfunction
     Route: 048
     Dates: start: 20220720, end: 20220720
  2. STENDRA [Suspect]
     Active Substance: AVANAFIL
     Route: 048
     Dates: start: 20220721, end: 20220721

REACTIONS (2)
  - Excessive masturbation [Not Recovered/Not Resolved]
  - Erection increased [Not Recovered/Not Resolved]

NARRATIVE: CASE EVENT DATE: 20220720
